FAERS Safety Report 17875263 (Version 1)
Quarter: 2020Q2

REPORT INFORMATION
  Report Type: Spontaneous
  Country: US (occurrence: US)
  Receive Date: 20200609
  Receipt Date: 20200609
  Transmission Date: 20200714
  Serious: Yes (Hospitalization)
  Sender: FDA-Public Use
  Company Number: None

PATIENT
  Age: 50 Year
  Sex: Female

DRUGS (9)
  1. NUCALA [Suspect]
     Active Substance: MEPOLIZUMAB
  2. FLOVENT [Concomitant]
     Active Substance: FLUTICASONE PROPIONATE
  3. METOPROLOL TARTRATE. [Concomitant]
     Active Substance: METOPROLOL TARTRATE
  4. LINZESS [Concomitant]
     Active Substance: LINACLOTIDE
  5. RANITIDINE HCL [Concomitant]
     Active Substance: RANITIDINE HYDROCHLORIDE
  6. DULERA [Concomitant]
     Active Substance: FORMOTEROL FUMARATE DIHYDRATE\MOMETASONE FUROATE
  7. URSODIOL. [Concomitant]
     Active Substance: URSODIOL
  8. SPIRIVA RESPIMAT [Concomitant]
     Active Substance: TIOTROPIUM BROMIDE
  9. DEXILANT [Concomitant]
     Active Substance: DEXLANSOPRAZOLE

REACTIONS (8)
  - Mental impairment [None]
  - Adverse drug reaction [None]
  - Speech disorder [None]
  - Hypertension [None]
  - Dysstasia [None]
  - Heart rate increased [None]
  - Hypoaesthesia [None]
  - Paraesthesia [None]

NARRATIVE: CASE EVENT DATE: 20200608
